FAERS Safety Report 9366766 (Version 1)
Quarter: 2013Q2

REPORT INFORMATION
  Report Type: Spontaneous
  Country: US (occurrence: US)
  Receive Date: 20130625
  Receipt Date: 20130625
  Transmission Date: 20140414
  Serious: Yes (Hospitalization)
  Sender: FDA-Public Use
  Company Number: US-GILEAD-2013-0074102

PATIENT
  Sex: Male

DRUGS (3)
  1. LETAIRIS [Suspect]
     Indication: PRODUCT USED FOR UNKNOWN INDICATION
     Dosage: 5 MG, QD
     Dates: start: 20110506
  2. ADCIRCA [Concomitant]
  3. VENTAVIS [Concomitant]

REACTIONS (8)
  - Transfusion [None]
  - Blood potassium decreased [Unknown]
  - Gastric infection [Unknown]
  - Cellulitis [Unknown]
  - Pyrexia [Unknown]
  - Fluid retention [Unknown]
  - Muscle spasms [Unknown]
  - Swelling [Unknown]
